FAERS Safety Report 8156704-0 (Version None)
Quarter: 2012Q1

REPORT INFORMATION
  Report Type: 
  Country: None (occurrence: None)
  Receive Date: 20120217
  Receipt Date: 20120202
  Transmission Date: 20120608
  Serious: Yes (Death)
  Sender: FDA-Public Use
  Company Number: 2012020077

PATIENT
  Age: 32 Year
  Sex: Female

DRUGS (4)
  1. DIPHENHYDRAMINE HCL [Suspect]
     Route: 048
  2. VALPROIC ACID [Suspect]
     Route: 048
  3. CARISOPRODOL (CARISOPRODOL) [Suspect]
     Route: 048
  4. OXYCODONE HCL [Suspect]
     Route: 048

REACTIONS (4)
  - RESPIRATORY ARREST [None]
  - INCORRECT DOSE ADMINISTERED [None]
  - CARDIAC ARREST [None]
  - DRUG ABUSE [None]
